FAERS Safety Report 11927405 (Version 2)
Quarter: 2016Q1

REPORT INFORMATION
  Report Type: Spontaneous
  Country: BR (occurrence: BR)
  Receive Date: 20160119
  Receipt Date: 20160129
  Transmission Date: 20160526
  Serious: Yes (Hospitalization, Other)
  Sender: FDA-Public Use
  Company Number: BR-PFIZER INC-2015333978

PATIENT
  Age: 68 Year
  Sex: Female
  Weight: 60 kg

DRUGS (6)
  1. FRONTAL [Suspect]
     Active Substance: ALPRAZOLAM
     Indication: CEREBRAL ISCHAEMIA
     Dosage: 2 MG, UNK
     Route: 048
     Dates: start: 2005
  2. SINVASTACOR [Concomitant]
     Active Substance: SIMVASTATIN
     Indication: BLOOD CHOLESTEROL INCREASED
     Dosage: 1 TABLET DAILY
     Dates: start: 2005
  3. FRONTAL [Suspect]
     Active Substance: ALPRAZOLAM
     Indication: CEREBRAL DISORDER
     Dosage: 1 MG, DAILY
     Route: 048
  4. PURAN [Concomitant]
     Active Substance: LEVOTHYROXINE SODIUM
     Indication: HYPERTHYROIDISM
     Dosage: 1 TABLET DAILY
  5. FRONTAL [Suspect]
     Active Substance: ALPRAZOLAM
     Dosage: 1 TABLET AT DAWN
     Route: 048
  6. DIOVAN [Concomitant]
     Active Substance: VALSARTAN
     Indication: HYPERTENSION
     Dosage: 1 TABLET 2C (AS REPORTED) DAILY

REACTIONS (12)
  - Arterial disorder [Unknown]
  - Asthma [Unknown]
  - Syncope [Unknown]
  - Intentional product use issue [Unknown]
  - Drug ineffective for unapproved indication [Unknown]
  - Dyspnoea [Unknown]
  - Hypokinesia [Unknown]
  - Pruritus [Unknown]
  - Blood pressure increased [Unknown]
  - Malaise [Unknown]
  - Seasonal allergy [Unknown]
  - Blister [Unknown]

NARRATIVE: CASE EVENT DATE: 2015
